FAERS Safety Report 22209086 (Version 2)
Quarter: 2023Q2

REPORT INFORMATION
  Report Type: Spontaneous
  Country: US (occurrence: US)
  Receive Date: 20230413
  Receipt Date: 20230511
  Transmission Date: 20230722
  Serious: Yes (Other)
  Sender: FDA-Public Use
  Company Number: US-VERTEX PHARMACEUTICALS-2023-005244

PATIENT

DRUGS (1)
  1. TRIKAFTA [Suspect]
     Active Substance: ELEXACAFTOR\IVACAFTOR\TEZACAFTOR
     Indication: Cystic fibrosis
     Dosage: UNK FREQ
     Route: 048

REACTIONS (14)
  - Substance abuser [Unknown]
  - Suicide attempt [Unknown]
  - Suicidal ideation [Unknown]
  - Anxiety [Unknown]
  - Thinking abnormal [Unknown]
  - Agitation [Unknown]
  - Irritability [Unknown]
  - Stress [Unknown]
  - Body dysmorphic disorder [Unknown]
  - Depression [Unknown]
  - Feeling guilty [Unknown]
  - Eating disorder [Unknown]
  - Defiant behaviour [Unknown]
  - Insomnia [Unknown]
